FAERS Safety Report 17329386 (Version 1)
Quarter: 2020Q1

REPORT INFORMATION
  Report Type: Spontaneous
  Country: US (occurrence: US)
  Receive Date: 20200127
  Receipt Date: 20200127
  Transmission Date: 20200409
  Serious: No
  Sender: FDA-Public Use
  Company Number: US-SA-2020SA021193

PATIENT
  Sex: Female

DRUGS (2)
  1. ALBUTEROL [SALBUTAMOL] [Concomitant]
     Active Substance: ALBUTEROL
  2. DUPIXENT [Suspect]
     Active Substance: DUPILUMAB
     Indication: ASTHMA
     Dosage: UNK
     Dates: start: 20191113, end: 20200108

REACTIONS (11)
  - Condition aggravated [Unknown]
  - Condition aggravated [Recovering/Resolving]
  - Condition aggravated [Recovering/Resolving]
  - Nodule [Recovering/Resolving]
  - Tenderness [Recovering/Resolving]
  - Contusion [Recovering/Resolving]
  - Dizziness [Unknown]
  - Fatigue [Unknown]
  - Splenomegaly [Unknown]
  - Eosinophilia [Unknown]
  - Back pain [Recovering/Resolving]

NARRATIVE: CASE EVENT DATE: 202001
